FAERS Safety Report 8975402 (Version 2)
Quarter: 2013Q1

REPORT INFORMATION
  Report Type: Spontaneous
  Country: US (occurrence: US)
  Receive Date: 20121219
  Receipt Date: 20130225
  Transmission Date: 20140127
  Serious: No
  Sender: FDA-Public Use
  Company Number: US-PFIZER INC-2012320148

PATIENT
  Age: 64 Year
  Sex: Female

DRUGS (2)
  1. LYRICA [Suspect]
     Indication: FIBROMYALGIA
     Dosage: 50 MG, UNK
     Route: 048
     Dates: start: 20101120
  2. LYRICA [Suspect]
     Indication: PAIN
     Dosage: 50 MG, UNK
     Route: 048
     Dates: start: 2011

REACTIONS (2)
  - Neurological symptom [Unknown]
  - Stupor [Recovered/Resolved]
